FAERS Safety Report 8477288-3 (Version None)
Quarter: 2012Q2

REPORT INFORMATION
  Report Type: 
  Country: None (occurrence: None)
  Receive Date: 20120629
  Receipt Date: 20120621
  Transmission Date: 20120825
  Serious: Yes (Other)
  Sender: FDA-Public Use
  Company Number: CA-UCBSA-059425

PATIENT
  Age: 65 Year
  Sex: Male
  Weight: 72.6 kg

DRUGS (2)
  1. CIMZIA [Suspect]
     Indication: RHEUMATOID ARTHRITIS
     Route: 058
     Dates: start: 20100410
  2. METHOTREXATE [Concomitant]
     Indication: RHEUMATOID ARTHRITIS
     Dosage: WEEKLY
     Route: 048
     Dates: start: 20050101

REACTIONS (5)
  - ROAD TRAFFIC ACCIDENT [None]
  - RIB FRACTURE [None]
  - LIGAMENT SPRAIN [None]
  - CONCUSSION [None]
  - ECCHYMOSIS [None]
